FAERS Safety Report 14664771 (Version 7)
Quarter: 2018Q2

REPORT INFORMATION
  Report Type: Spontaneous
  Country: US (occurrence: US)
  Receive Date: 20180321
  Receipt Date: 20180615
  Transmission Date: 20180711
  Serious: Yes (Hospitalization)
  Sender: FDA-Public Use
  Company Number: US-ACTELION-A-NJ2018-168896

PATIENT
  Age: 38 Year
  Sex: Female
  Weight: 80.73 kg

DRUGS (2)
  1. VELETRI [Suspect]
     Active Substance: EPOPROSTENOL
     Indication: PULMONARY ARTERIAL HYPERTENSION
     Dosage: 4.5 NG/KG, PER MIN
     Route: 042
  2. ADEMPAS [Concomitant]
     Active Substance: RIOCIGUAT

REACTIONS (14)
  - Atrial septal defect [Unknown]
  - Catheter site infection [Unknown]
  - Catheter site pruritus [Unknown]
  - Headache [Unknown]
  - Rash [Unknown]
  - Asthenia [Unknown]
  - Incision site pain [Unknown]
  - Swelling face [Unknown]
  - Eye swelling [Unknown]
  - Catheter site erythema [Unknown]
  - Catheter site inflammation [Unknown]
  - Catheter site rash [Unknown]
  - Atrial septal defect repair [Unknown]
  - Catheter site vesicles [Unknown]

NARRATIVE: CASE EVENT DATE: 20180317
